FAERS Safety Report 18265693 (Version 4)
Quarter: 2020Q3

REPORT INFORMATION
  Report Type: Spontaneous
  Country: MY (occurrence: MY)
  Receive Date: 20200914
  Receipt Date: 20200930
  Transmission Date: 20201103
  Serious: Yes (Death)
  Sender: FDA-Public Use
  Company Number: MY-ABBVIE-20K-101-3565210-00

PATIENT
  Age: 44 Year
  Sex: Male

DRUGS (3)
  1. IBRUTINIB [Concomitant]
     Active Substance: IBRUTINIB
     Indication: MANTLE CELL LYMPHOMA
     Route: 048
     Dates: start: 202001, end: 202003
  2. ITRACONAZOLE. [Concomitant]
     Active Substance: ITRACONAZOLE
     Indication: PRODUCT USED FOR UNKNOWN INDICATION
     Route: 048
     Dates: start: 201911, end: 202003
  3. VENCLEXTA [Suspect]
     Active Substance: VENETOCLAX
     Indication: MANTLE CELL LYMPHOMA
     Route: 048
     Dates: start: 201911, end: 202003

REACTIONS (2)
  - Mantle cell lymphoma [Fatal]
  - Off label use [Unknown]

NARRATIVE: CASE EVENT DATE: 201911
